FAERS Safety Report 21665180 (Version 1)
Quarter: 2022Q4

REPORT INFORMATION
  Report Type: Spontaneous
  Country: FR (occurrence: FR)
  Receive Date: 20221130
  Receipt Date: 20221130
  Transmission Date: 20230113
  Serious: Yes (Other)
  Sender: FDA-Public Use
  Company Number: FR-TEVA-2022-FR-2830811

PATIENT
  Sex: Male

DRUGS (3)
  1. METHOTREXATE [Suspect]
     Active Substance: METHOTREXATE
     Indication: Neurodermatitis
     Dosage: 10 MG/WEEK
     Route: 065
     Dates: start: 201912
  2. ALITRETINOIN [Suspect]
     Active Substance: ALITRETINOIN
     Indication: Neurodermatitis
     Dosage: 10 MILLIGRAM DAILY;
     Route: 065
     Dates: start: 201911
  3. ALITRETINOIN [Suspect]
     Active Substance: ALITRETINOIN
     Dosage: 10 MG/WEEK
     Route: 065

REACTIONS (1)
  - Hepatic enzyme increased [Unknown]
